FAERS Safety Report 5584427-0 (Version None)
Quarter: 2008Q1

REPORT INFORMATION
  Report Type: 
  Country: None (occurrence: None)
  Receive Date: 20080108
  Receipt Date: 20080104
  Transmission Date: 20080703
  Serious: Yes (Hospitalization)
  Sender: FDA-Public Use
  Company Number: FR-ELI_LILLY_AND_COMPANY-FR200801000550

PATIENT
  Age: 64 Year
  Sex: Female

DRUGS (5)
  1. GEMZAR [Suspect]
     Indication: OVARIAN CANCER
     Dosage: 1600 MG, OTHER
     Route: 042
     Dates: end: 20070327
  2. ELOXATINE /FRA/ [Concomitant]
     Indication: OVARIAN CANCER
     Dosage: 160 MG, OTHER
     Route: 042
     Dates: end: 20070327
  3. PLITICAN [Concomitant]
     Indication: PREMEDICATION
     Dosage: 50 MG, OTHER
     Route: 042
     Dates: end: 20070327
  4. SOLU-MEDROL [Concomitant]
     Indication: PREMEDICATION
     Dosage: 60 MG, OTHER
     Route: 042
     Dates: end: 20070327
  5. ZOPHREN [Concomitant]
     Indication: PREMEDICATION
     Dosage: 8 MG, OTHER
     Route: 042
     Dates: end: 20070327

REACTIONS (5)
  - CHILLS [None]
  - NAUSEA [None]
  - PARAESTHESIA MUCOSAL [None]
  - TREMOR [None]
  - VOMITING [None]
